FAERS Safety Report 25325707 (Version 1)
Quarter: 2025Q2

REPORT INFORMATION
  Report Type: Spontaneous
  Country: US (occurrence: None)
  Receive Date: 20250516
  Receipt Date: 20250516
  Transmission Date: 20250716
  Serious: Yes (Hospitalization)
  Sender: FDA-CTU
  Company Number: None

PATIENT
  Age: 68 Year
  Sex: Male
  Weight: 77.11 kg

DRUGS (7)
  1. METOPROLOL SUCCINATE [Suspect]
     Active Substance: METOPROLOL SUCCINATE
     Indication: Hypertension
     Dosage: 1 PILL 1 PER DAY MOUTH ?
     Route: 048
     Dates: start: 20250410, end: 20250410
  2. VITAMINS [Concomitant]
     Active Substance: VITAMINS
  3. Saw Palmetto berries [Concomitant]
     Dosage: FREQUENCY : TWICE A DAY;?
  4. Fish Oil Omega [Concomitant]
  5. DIMETHYL SULFONE [Concomitant]
     Active Substance: DIMETHYL SULFONE
     Dosage: FREQUENCY : DAILY;?
  6. TYLENOL [Concomitant]
     Active Substance: ACETAMINOPHEN
  7. COENZYME Q10 [Suspect]
     Active Substance: DIETARY SUPPLEMENT\UBIDECARENONE

REACTIONS (5)
  - Dizziness [None]
  - Somnolence [None]
  - Heart rate increased [None]
  - Chest discomfort [None]
  - Drug interaction [None]
